FAERS Safety Report 5032133-3 (Version None)
Quarter: 2006Q2

REPORT INFORMATION
  Report Type: 
  Country: None (occurrence: None)
  Receive Date: 20060619
  Receipt Date: 20060609
  Transmission Date: 20061013
  Serious: Yes (Hospitalization)
  Sender: FDA-Public Use
  Company Number: TPA2006A00952

PATIENT
  Age: 75 Year
  Sex: Female
  Weight: 169.6 kg

DRUGS (9)
  1. ACTOS [Suspect]
     Dosage: PER ORAL
     Route: 048
  2. NPH INSULIN [Suspect]
  3. DYAZIDE [Concomitant]
  4. METOPROLOL SUCCINATE [Concomitant]
  5. PROTONIX [Concomitant]
  6. GEMZAR [Concomitant]
  7. PACLITAXEL (PACLITEXAL) [Concomitant]
  8. ASPIRIN [Concomitant]
  9. CALCIUM CARBONATE (CALCIUM CARBONATE) [Concomitant]

REACTIONS (6)
  - CONFUSIONAL STATE [None]
  - DRUG ADMINISTRATION ERROR [None]
  - HYPERKALAEMIA [None]
  - HYPOGLYCAEMIA [None]
  - LOSS OF CONSCIOUSNESS [None]
  - RENAL FAILURE ACUTE [None]
